FAERS Safety Report 17102626 (Version 2)
Quarter: 2019Q4

REPORT INFORMATION
  Report Type: Spontaneous
  Country: US (occurrence: US)
  Receive Date: 20191202
  Receipt Date: 20191206
  Transmission Date: 20200122
  Serious: Yes (Other)
  Sender: FDA-Public Use
  Company Number: US-MTPC-MTDA2019-0080189

PATIENT

DRUGS (1)
  1. RADICAVA [Suspect]
     Active Substance: EDARAVONE
     Indication: AMYOTROPHIC LATERAL SCLEROSIS
     Dosage: 2 BAGS (30 MILLIGRAM EACH BAG) FOR EACH DOSE
     Route: 065
     Dates: start: 20190925, end: 20191121

REACTIONS (1)
  - Dementia [Unknown]
